FAERS Safety Report 14915431 (Version 1)
Quarter: 2018Q2

REPORT INFORMATION
  Report Type: Spontaneous
  Country: US (occurrence: US)
  Receive Date: 20180518
  Receipt Date: 20180518
  Transmission Date: 20180711
  Serious: No
  Sender: FDA-Public Use
  Company Number: US-ARALEZ PHARMACEUTICALS R+D INC.-2018-ARA-001209

PATIENT
  Sex: Female

DRUGS (3)
  1. BABY ASPIRIN [Concomitant]
     Active Substance: ASPIRIN
  2. HYDROCHLOROTHIAZIDE. [Concomitant]
     Active Substance: HYDROCHLOROTHIAZIDE
  3. ZONTIVITY [Suspect]
     Active Substance: VORAPAXAR SULFATE
     Indication: HYPERTENSION
     Dosage: 2.08 MG, QD
     Route: 065

REACTIONS (3)
  - Malaise [Unknown]
  - Dizziness [Unknown]
  - Constipation [Unknown]
